FAERS Safety Report 5501685-9 (Version None)
Quarter: 2007Q4

REPORT INFORMATION
  Report Type: 
  Country: None (occurrence: None)
  Receive Date: 20071026
  Receipt Date: 20071026
  Transmission Date: 20080405
  Serious: Yes (Other)
  Sender: FDA-Public Use
  Company Number: None

PATIENT
  Sex: Female
  Weight: 63.5036 kg

DRUGS (3)
  1. CYMBALTA [Suspect]
     Indication: DEPRESSION
     Dosage: 60MG  DAILY  PO
     Route: 048
     Dates: start: 20070530, end: 20071030
  2. TRAMODOL   10 MG [Suspect]
     Indication: PROCEDURAL PAIN
     Dosage: 10 MG  EVERY 4 HOURS  PO
     Route: 048
     Dates: start: 20070928, end: 20071005
  3. ZOMIG-ZMT [Concomitant]

REACTIONS (5)
  - BLOOD PRESSURE INCREASED [None]
  - HEADACHE [None]
  - HEART RATE INCREASED [None]
  - HYPERHIDROSIS [None]
  - IRRITABILITY [None]
